FAERS Safety Report 8843241 (Version 1)
Quarter: 2012Q4

REPORT INFORMATION
  Report Type: 
  Country: DE (occurrence: DE)
  Receive Date: 20121016
  Receipt Date: 20121016
  Transmission Date: 20130627
  Serious: Yes (Congenital Anomaly, Other)
  Sender: FDA-Public Use
  Company Number: GXKR2012DE003198

PATIENT

DRUGS (6)
  1. METFORMIN [Suspect]
     Dosage: Maternal dose: UNK UKN, UNK
     Route: 064
  2. RAMIPRIL [Suspect]
     Dosage: Maternal dose: UNK UKN, UNK
     Route: 064
  3. METOPROLOL [Concomitant]
     Indication: HYPERTENSION
     Dosage: Maternal dose: UNK UKN, UNK
     Route: 064
  4. DOPEGYT [Concomitant]
     Indication: HYPERTENSION
     Dosage: Maternal dose: 750 [mg/d (3x 250) ]
     Route: 064
  5. NOVORAPID [Concomitant]
     Indication: TYPE 2 DIABETES MELLITUS
     Dosage: Maternal dose: 52 [IE/d ]
     Route: 064
  6. PROTAPHANE MC [Concomitant]
     Indication: TYPE 2 DIABETES MELLITUS
     Dosage: Maternal dose: 30 IE/d
     Route: 064

REACTIONS (8)
  - Congenital aortic valve stenosis [Recovered/Resolved with Sequelae]
  - Mitral valve incompetence [Not Recovered/Not Resolved]
  - Patent ductus arteriosus [Recovered/Resolved]
  - Atrial septal defect [Not Recovered/Not Resolved]
  - Bicuspid aortic valve [Not Recovered/Not Resolved]
  - Neonatal respiratory distress syndrome [Recovered/Resolved]
  - Premature baby [Unknown]
  - Foetal exposure during pregnancy [Unknown]
